FAERS Safety Report 7310607-X (Version None)
Quarter: 2011Q1

REPORT INFORMATION
  Report Type: 
  Country: None (occurrence: None)
  Receive Date: 20110224
  Receipt Date: 20100406
  Transmission Date: 20110831
  Serious: No
  Sender: FDA-Public Use
  Company Number: US-BRISTOL-MYERS SQUIBB COMPANY-15051055

PATIENT
  Age: 61 Year
  Sex: Female

DRUGS (3)
  1. METFORMIN HCL [Suspect]
     Indication: DIABETES MELLITUS
     Route: 048
  2. LANTUS [Suspect]
     Indication: TYPE 2 DIABETES MELLITUS
     Dosage: TAKEN VIA OPTICLIK BLUE, INSULIN DELIVERY DEVICE 100 IU/ML(15-18UNITS/D)FOR 4 YRS
     Route: 058
     Dates: start: 20060101
  3. GLYBURIDE [Suspect]
     Indication: DIABETES MELLITUS
     Route: 048

REACTIONS (2)
  - NAUSEA [None]
  - VOMITING [None]
